FAERS Safety Report 7305935-8 (Version None)
Quarter: 2011Q1

REPORT INFORMATION
  Report Type: 
  Country: None (occurrence: None)
  Receive Date: 20110222
  Receipt Date: 20110215
  Transmission Date: 20110831
  Serious: Yes (Other)
  Sender: FDA-Public Use
  Company Number: CA-US-EMD SERONO, INC.-7043037

PATIENT
  Sex: Female

DRUGS (4)
  1. REBIF [Suspect]
     Dates: start: 20090101, end: 20090101
  2. REBIF [Suspect]
     Dates: start: 20090701, end: 20101101
  3. REBIF [Suspect]
     Dates: start: 20101101
  4. REBIF [Suspect]
     Indication: RELAPSING-REMITTING MULTIPLE SCLEROSIS
     Dates: start: 20060405, end: 20090101

REACTIONS (2)
  - PLATELET COUNT DECREASED [None]
  - LYMPHOCYTE COUNT DECREASED [None]
